FAERS Safety Report 19027106 (Version 1)
Quarter: 2021Q1

REPORT INFORMATION
  Report Type: Report from Study
  Country: US (occurrence: US)
  Receive Date: 20210318
  Receipt Date: 20210318
  Transmission Date: 20210420
  Serious: Yes (Hospitalization)
  Sender: FDA-Public Use
  Company Number: NVSC2021US056729

PATIENT
  Sex: Female

DRUGS (1)
  1. KISQALI [Suspect]
     Active Substance: RIBOCICLIB
     Indication: PRODUCT USED FOR UNKNOWN INDICATION
     Dosage: UNK
     Route: 048

REACTIONS (11)
  - Alopecia [Unknown]
  - COVID-19 pneumonia [Unknown]
  - Rash pruritic [Unknown]
  - Weight decreased [Unknown]
  - Skin reaction [Unknown]
  - Oxygen saturation decreased [Unknown]
  - Insomnia [Unknown]
  - Diarrhoea [Unknown]
  - White blood cell count decreased [Unknown]
  - Headache [Unknown]
  - Gait disturbance [Unknown]
